FAERS Safety Report 6338016-0 (Version None)
Quarter: 2009Q3

REPORT INFORMATION
  Report Type: 
  Country: None (occurrence: None)
  Receive Date: 20090902
  Receipt Date: 20090821
  Transmission Date: 20100115
  Serious: Yes (Other)
  Sender: FDA-Public Use
  Company Number: ES-PFIZER INC-2009257888

PATIENT
  Age: 13 Year

DRUGS (1)
  1. GENOTONORM [Suspect]
     Dosage: 1.2 MG, 1X/DAY
     Dates: start: 20020601, end: 20090401

REACTIONS (1)
  - ACROMEGALY [None]
